FAERS Safety Report 17300613 (Version 1)
Quarter: 2020Q1

REPORT INFORMATION
  Report Type: Spontaneous
  Country: US (occurrence: US)
  Receive Date: 20200122
  Receipt Date: 20200122
  Transmission Date: 20200409
  Serious: No
  Sender: FDA-Public Use
  Company Number: US-ALLERGAN-1944889US

PATIENT
  Age: 11 Year
  Sex: Female
  Weight: 47.62 kg

DRUGS (2)
  1. RESTASIS [Suspect]
     Active Substance: CYCLOSPORINE
     Indication: CORNEAL INFECTION
     Dosage: 1 GTT, BID
     Route: 047
  2. OLOPATADINE. [Concomitant]
     Active Substance: OLOPATADINE
     Dosage: UNK
     Route: 047

REACTIONS (1)
  - Off label use [Unknown]
